FAERS Safety Report 8581201-8 (Version None)
Quarter: 2012Q3

REPORT INFORMATION
  Report Type: 
  Country: None (occurrence: None)
  Receive Date: 20120727
  Receipt Date: 20120710
  Transmission Date: 20120928
  Serious: Yes (Other)
  Sender: FDA-Public Use
  Company Number: 2012-310

PATIENT
  Age: 25 Year
  Sex: Female

DRUGS (1)
  1. PRIALT [Suspect]
     Indication: ARACHNOIDITIS
     Dosage: UG, ONCE/HOUR, INTRATHECAL
     Route: 037

REACTIONS (3)
  - BENIGN HYDATIDIFORM MOLE [None]
  - ABORTION SPONTANEOUS [None]
  - MATERNAL EXPOSURE DURING PREGNANCY [None]
